FAERS Safety Report 22107100 (Version 2)
Quarter: 2023Q2

REPORT INFORMATION
  Report Type: Report from Study
  Country: US (occurrence: US)
  Receive Date: 20230317
  Receipt Date: 20230614
  Transmission Date: 20230721
  Serious: Yes (Other)
  Sender: FDA-Public Use
  Company Number: US-SA-SAC20230313001562

PATIENT
  Age: 63 Year
  Sex: Female

DRUGS (1)
  1. BELUMOSUDIL MESYLATE [Suspect]
     Active Substance: BELUMOSUDIL MESYLATE
     Indication: Graft versus host disease
     Dosage: 200 MG, QD
     Route: 048
     Dates: start: 20220407

REACTIONS (4)
  - Scleroderma [Not Recovered/Not Resolved]
  - Abdominal discomfort [Recovered/Resolved]
  - Blood cholesterol increased [Unknown]
  - Dyspnoea [Unknown]
